FAERS Safety Report 6679777-0 (Version None)
Quarter: 2010Q2

REPORT INFORMATION
  Report Type: 
  Country: None (occurrence: None)
  Receive Date: 20100413
  Receipt Date: 20090402
  Transmission Date: 20101027
  Serious: No
  Sender: FDA-Public Use
  Company Number: US-ASTRAZENECA-2009UW08321

PATIENT
  Sex: Female

DRUGS (6)
  1. ATENOLOL [Suspect]
     Route: 048
  2. AVAPRO [Suspect]
  3. CARDIZEM [Suspect]
  4. TIMOLOL [Suspect]
  5. INDERAL [Suspect]
  6. LOTREL [Suspect]

REACTIONS (3)
  - ABDOMINAL DISCOMFORT [None]
  - HEADACHE [None]
  - MALAISE [None]
